FAERS Safety Report 21253766 (Version 1)
Quarter: 2022Q3

REPORT INFORMATION
  Report Type: Spontaneous
  Country: US (occurrence: None)
  Receive Date: 20220824
  Receipt Date: 20220824
  Transmission Date: 20221027
  Serious: Yes (Hospitalization)
  Sender: FDA-Public Use
  Company Number: None

PATIENT
  Age: 63 Year
  Sex: Female

DRUGS (1)
  1. COSENTYX [Suspect]
     Active Substance: SECUKINUMAB
     Indication: Psoriatic arthropathy
     Dosage: INJECT 2 PENS UNDER THE SKIN (SUBCUTANEOUS INJECTION) EVERY 4 WEEKS.?
     Route: 058
     Dates: start: 20200530

REACTIONS (1)
  - Oxygen therapy [None]

NARRATIVE: CASE EVENT DATE: 20220801
